FAERS Safety Report 6126448-5 (Version None)
Quarter: 2009Q1

REPORT INFORMATION
  Report Type: 
  Country: None (occurrence: None)
  Receive Date: 20090320
  Receipt Date: 20090312
  Transmission Date: 20090719
  Serious: Yes (Other)
  Sender: FDA-Public Use
  Company Number: DE-AMGEN-QUU338133

PATIENT
  Sex: Female

DRUGS (2)
  1. KEPIVANCE [Suspect]
     Indication: MUCOSAL INFLAMMATION
  2. UNSPECIFIED ANTINEOPLASTIC AGENT [Concomitant]

REACTIONS (1)
  - PANCREATITIS [None]
